FAERS Safety Report 8820017 (Version 2)
Quarter: 2012Q4

REPORT INFORMATION
  Report Type: Report from Study
  Country: JP (occurrence: JP)
  Receive Date: 20121001
  Receipt Date: 20121226
  Transmission Date: 20130627
  Serious: Yes (Hospitalization, Other)
  Sender: FDA-Public Use
  Company Number: JP-VERTEX PHARMACEUTICAL INC.-AE-2012-011829

PATIENT
  Age: 64 Year
  Sex: Male

DRUGS (16)
  1. VX-950 (TELAPREVIR) [Suspect]
     Indication: CHRONIC HEPATITIS C
     Dosage: 2250 mg, qd
     Route: 048
     Dates: start: 20120615, end: 20120618
  2. VX-950 (TELAPREVIR) [Suspect]
     Dosage: 1500 mg, qd
     Route: 048
     Dates: start: 20120629, end: 20120720
  3. REBETOL [Suspect]
     Indication: CHRONIC HEPATITIS C
     Dosage: 800 mg, qd
     Route: 048
     Dates: start: 20120615, end: 20120618
  4. REBETOL [Suspect]
     Dosage: 800 mg, qd
     Route: 048
     Dates: start: 20120629, end: 20120720
  5. REBETOL [Suspect]
     Dosage: 600 mg, qd
     Route: 048
     Dates: start: 20120721, end: 20120727
  6. REBETOL [Suspect]
     Dosage: 800 UNK, UNK
     Route: 048
     Dates: start: 20121005, end: 20121101
  7. REBETOL [Suspect]
     Dosage: 600 UNK, UNK
     Route: 048
     Dates: start: 20121102
  8. PEGINTRON                          /01543001/ [Suspect]
     Indication: CHRONIC HEPATITIS C
     Dosage: 1.5 UNK, UNK
     Route: 058
     Dates: start: 20120615, end: 20120615
  9. PEGINTRON                          /01543001/ [Suspect]
     Dosage: 1.5 UNK, UNK
     Route: 058
     Dates: start: 20120629, end: 20120720
  10. PEGINTRON                          /01543001/ [Suspect]
     Dosage: 1.5 ?g/kg, UNK
     Route: 058
     Dates: start: 20121005
  11. ACINON [Concomitant]
     Dosage: 1 DF, qd
     Route: 048
  12. BLOPRESS [Concomitant]
     Dosage: 1 DF, qd
     Route: 048
  13. ADALAT L [Concomitant]
     Dosage: 1 DF, qd
     Route: 048
  14. MAINTATE [Concomitant]
     Dosage: 2 DF, qd
     Route: 048
  15. ALOSITOL [Concomitant]
     Route: 048
  16. URSO                               /00465701/ [Concomitant]
     Dosage: 600 mg, qd
     Route: 048
     Dates: start: 20120818

REACTIONS (5)
  - Blood creatinine increased [Recovered/Resolved]
  - Blood creatinine increased [Recovered/Resolved]
  - Blood creatinine increased [Not Recovered/Not Resolved]
  - Hyperuricaemia [Recovered/Resolved]
  - Haemoglobin decreased [Recovered/Resolved]
